FAERS Safety Report 5925169-9 (Version None)
Quarter: 2008Q4

REPORT INFORMATION
  Report Type: 
  Country: None (occurrence: None)
  Receive Date: 20081021
  Receipt Date: 20081015
  Transmission Date: 20090506
  Serious: Yes (Other)
  Sender: FDA-Public Use
  Company Number: US-ASTRAZENECA-2008UW22672

PATIENT
  Age: 69 Year
  Sex: Female
  Weight: 61.2 kg

DRUGS (6)
  1. ATACAND [Suspect]
     Indication: HYPERTENSION
     Route: 048
     Dates: end: 20020101
  2. ATACAND [Suspect]
     Route: 048
     Dates: start: 20040101
  3. ATENOLOL [Concomitant]
     Route: 048
  4. DIURETIC [Concomitant]
  5. BENADRYL [Concomitant]
  6. ASPIRIN [Concomitant]

REACTIONS (5)
  - BRAIN NEOPLASM [None]
  - FACIAL PALSY [None]
  - FEELING ABNORMAL [None]
  - HEADACHE [None]
  - PARALYSIS [None]
